FAERS Safety Report 12971808 (Version 1)
Quarter: 2016Q4

REPORT INFORMATION
  Report Type: Spontaneous
  Country: BE (occurrence: BE)
  Receive Date: 20161124
  Receipt Date: 20161124
  Transmission Date: 20170207
  Serious: Yes (Other)
  Sender: FDA-Public Use
  Company Number: BE-ROCHE-1857430

PATIENT
  Sex: Female
  Weight: 55 kg

DRUGS (1)
  1. CYMEVENE [Suspect]
     Active Substance: GANCICLOVIR
     Indication: CYTOMEGALOVIRUS INFECTION
     Route: 065
     Dates: start: 2016

REACTIONS (1)
  - Post transplant lymphoproliferative disorder [Unknown]

NARRATIVE: CASE EVENT DATE: 2016
